FAERS Safety Report 15060381 (Version 1)
Quarter: 2018Q2

REPORT INFORMATION
  Report Type: Spontaneous
  Country: US (occurrence: US)
  Receive Date: 20180625
  Receipt Date: 20180625
  Transmission Date: 20180711
  Serious: Yes (Other)
  Sender: FDA-Public Use
  Company Number: US-ABBVIE-18S-163-2393806-00

PATIENT
  Age: 66 Year
  Sex: Female

DRUGS (6)
  1. FLOVENT [Suspect]
     Active Substance: FLUTICASONE PROPIONATE
     Indication: ASTHMA
     Route: 055
  2. SYNTHROID [Suspect]
     Active Substance: LEVOTHYROXINE SODIUM
     Route: 048
     Dates: start: 20180504, end: 201805
  3. FLOVENT [Suspect]
     Active Substance: FLUTICASONE PROPIONATE
     Route: 055
  4. SYNTHROID [Suspect]
     Active Substance: LEVOTHYROXINE SODIUM
     Dosage: 12.5 MCG/MG, QOD
     Route: 048
     Dates: start: 2018, end: 20180504
  5. LATANOPROST. [Concomitant]
     Active Substance: LATANOPROST
     Indication: PRODUCT USED FOR UNKNOWN INDICATION
  6. SYNTHROID [Suspect]
     Active Substance: LEVOTHYROXINE SODIUM
     Indication: PRODUCT USED FOR UNKNOWN INDICATION
     Dosage: 12.5 MCG/MG ONCE DAILY
     Route: 048
     Dates: end: 2008

REACTIONS (5)
  - Dysphonia [Not Recovered/Not Resolved]
  - Glaucoma [Not Recovered/Not Resolved]
  - Fatigue [Not Recovered/Not Resolved]
  - Blood thyroid stimulating hormone decreased [Not Recovered/Not Resolved]
  - Hypersomnia [Not Recovered/Not Resolved]

NARRATIVE: CASE EVENT DATE: 201804
